FAERS Safety Report 9235784 (Version 1)
Quarter: 2013Q2

REPORT INFORMATION
  Report Type: Spontaneous
  Country: US (occurrence: None)
  Receive Date: 20130416
  Receipt Date: 20130416
  Transmission Date: 20140414
  Serious: Yes (Hospitalization)
  Sender: FDA-Public Use
  Company Number: None

PATIENT
  Age: 72 Year
  Sex: Female

DRUGS (3)
  1. VANCOMYCIN [Suspect]
     Indication: PNEUMONIA
     Route: 042
     Dates: start: 20121018, end: 20121022
  2. AMIKACIN [Suspect]
     Indication: PNEUMONIA
     Route: 042
     Dates: start: 20121018, end: 20121022
  3. FUROSEMIDE 40 MG [Concomitant]

REACTIONS (3)
  - Nephropathy toxic [None]
  - Renal failure acute [None]
  - Iatrogenic injury [None]
